FAERS Safety Report 13839707 (Version 2)
Quarter: 2017Q3

REPORT INFORMATION
  Report Type: Spontaneous
  Country: US (occurrence: US)
  Receive Date: 20170807
  Receipt Date: 20170825
  Transmission Date: 20171127
  Serious: No
  Sender: FDA-Public Use
  Company Number: US-SUNOVION-2017SUN003317

PATIENT
  Age: 46 Year
  Sex: Female
  Weight: 85.26 kg

DRUGS (4)
  1. LATUDA [Suspect]
     Active Substance: LURASIDONE HYDROCHLORIDE
     Indication: BIPOLAR I DISORDER
     Dosage: 80 MG ORALLY EVERY MORNING
     Route: 048
     Dates: end: 20170813
  2. ZOLOFT [Concomitant]
     Active Substance: SERTRALINE HYDROCHLORIDE
     Indication: PRODUCT USED FOR UNKNOWN INDICATION
  3. LATUDA [Suspect]
     Active Substance: LURASIDONE HYDROCHLORIDE
     Indication: BIPOLAR DISORDER
     Dosage: 20 MG ORALLY EVERY MORNING
     Route: 048
     Dates: start: 20160808
  4. TOPAMAX [Concomitant]
     Active Substance: TOPIRAMATE
     Indication: ANXIETY
     Dosage: UNK
     Route: 048
     Dates: start: 20161121

REACTIONS (2)
  - Tardive dyskinesia [Not Recovered/Not Resolved]
  - Dyskinesia [Unknown]
